FAERS Safety Report 4897354-9 (Version None)
Quarter: 2005Q4

REPORT INFORMATION
  Report Type: 
  Country: None (occurrence: None)
  Receive Date: 20051223
  Receipt Date: 20051104
  Transmission Date: 20060501
  Serious: No
  Sender: FDA-Public Use
  Company Number: 05P-163-0316504-00

PATIENT
  Age: 58 Year
  Sex: Female
  Weight: 86.1834 kg

DRUGS (9)
  1. HUMIRA [Suspect]
     Indication: RHEUMATOID ARTHRITIS
     Dosage: 40 MG, 1 IN 2 WK, SUBCUTANEOUS
     Route: 058
     Dates: start: 20050101
  2. METHOTREXATE [Concomitant]
  3. MELOXICAM [Concomitant]
  4. FOLIC ACID [Concomitant]
  5. CENTRUM SILVER [Concomitant]
  6. CALCIUM GLUCONATE [Concomitant]
  7. RISEDRONATE SODIUM [Concomitant]
  8. PREDNISONE [Concomitant]
  9. LEVOTHYROXINE SODIUM [Concomitant]

REACTIONS (1)
  - PROCEDURAL COMPLICATION [None]
